FAERS Safety Report 7298483-5 (Version None)
Quarter: 2011Q1

REPORT INFORMATION
  Report Type: 
  Country: None (occurrence: None)
  Receive Date: 20110217
  Receipt Date: 20100928
  Transmission Date: 20110831
  Serious: Yes (Hospitalization, Other)
  Sender: FDA-Public Use
  Company Number: US-BAYER-201033586NA

PATIENT
  Sex: Female
  Weight: 99.773 kg

DRUGS (1)
  1. YAZ [Suspect]
     Indication: CONTRACEPTION
     Dosage: UNK
     Dates: start: 20070401, end: 20100101

REACTIONS (7)
  - PAIN [None]
  - CHEST DISCOMFORT [None]
  - PULMONARY EMBOLISM [None]
  - HEART RATE INCREASED [None]
  - VENTRICULAR TACHYCARDIA [None]
  - PULMONARY THROMBOSIS [None]
  - DYSPNOEA [None]
